FAERS Safety Report 8146224-1 (Version None)
Quarter: 2012Q1

REPORT INFORMATION
  Report Type: 
  Country: None (occurrence: None)
  Receive Date: 20120217
  Receipt Date: 20111123
  Transmission Date: 20120608
  Serious: No
  Sender: FDA-Public Use
  Company Number: US-ABBOTT-11P-163-0878250-00

PATIENT
  Sex: Female

DRUGS (1)
  1. SIMCOR [Suspect]
     Indication: BLOOD CHOLESTEROL INCREASED
     Dosage: 500/40 MG
     Dates: start: 20110817

REACTIONS (3)
  - GENERALISED ERYTHEMA [None]
  - SKIN BURNING SENSATION [None]
  - CHEST DISCOMFORT [None]
